FAERS Safety Report 20947458 (Version 9)
Quarter: 2023Q1

REPORT INFORMATION
  Report Type: Report from Study
  Country: CN (occurrence: None)
  Receive Date: 20220610
  Receipt Date: 20230315
  Transmission Date: 20230417
  Serious: Yes (Hospitalization)
  Sender: FDA-Public Use
  Company Number: CN-ROCHE-3111403

PATIENT
  Age: 69 Year
  Sex: Male
  Weight: 50 kg

DRUGS (35)
  1. ATEZOLIZUMAB [Suspect]
     Active Substance: ATEZOLIZUMAB
     Indication: Metastatic gastric cancer
     Dosage: DOSE LAST STUDY DRUG ADMIN PRIOR AE IS 1200 MG?START DATE OF MOST RECENT DOSE OF STUDY DRUG PRIOR TO
     Route: 041
     Dates: start: 20220513
  2. CAPECITABINE [Suspect]
     Active Substance: CAPECITABINE
     Indication: Metastatic gastric cancer
     Dosage: DOSE LAST STUDY DRUG CAPECITABINE ADMIN PRIOR AE IS 1200 MG?START  AND END DATE OF MOST RECENT DOSE
     Route: 048
     Dates: start: 20220513
  3. OXALIPLATIN [Suspect]
     Active Substance: OXALIPLATIN
     Indication: Metastatic gastric cancer
     Dosage: DOSE LAST STUDY DRUG ADMIN PRIOR AE: 199 MG?START DATE OF MOST RECENT DOSE OF STUDY DRUG PRIOR TO AE
     Route: 042
     Dates: start: 20220513
  4. TONG GUAN TENG [Concomitant]
     Dates: start: 20220509, end: 20220509
  5. HEPARIN CALCIUM [Concomitant]
     Active Substance: HEPARIN CALCIUM
     Indication: Arteriosclerosis coronary artery
     Dates: start: 20220509, end: 20220516
  6. OXYCODONE HYDROCHLORIDE [Concomitant]
     Active Substance: OXYCODONE HYDROCHLORIDE
     Dates: start: 20220509, end: 20220526
  7. GRANISETRON HYDROCHLORIDE [Concomitant]
     Active Substance: GRANISETRON HYDROCHLORIDE
     Dates: start: 20220513, end: 20220516
  8. GRANISETRON HYDROCHLORIDE [Concomitant]
     Active Substance: GRANISETRON HYDROCHLORIDE
     Dates: start: 20220613, end: 20220613
  9. ATORVASTATIN CALCIUM [Concomitant]
     Active Substance: ATORVASTATIN CALCIUM
     Indication: Arteriosclerosis coronary artery
     Dates: start: 20220512
  10. INDOBUFEN [Concomitant]
     Active Substance: INDOBUFEN
     Indication: Arteriosclerosis coronary artery
     Dates: start: 20220512
  11. APREPITANT [Concomitant]
     Active Substance: APREPITANT
     Indication: Hiccups
     Dates: start: 20220513, end: 20220515
  12. APREPITANT [Concomitant]
     Active Substance: APREPITANT
     Dates: start: 20220518, end: 20220518
  13. METOCLOPRAMIDE HYDROCHLORIDE [Concomitant]
     Active Substance: METOCLOPRAMIDE HYDROCHLORIDE
     Indication: Hiccups
     Dates: start: 20220514, end: 20220514
  14. BACLOFEN [Concomitant]
     Active Substance: BACLOFEN
     Indication: Hiccups
     Dates: start: 20220516, end: 20220517
  15. BACLOFEN [Concomitant]
     Active Substance: BACLOFEN
     Dates: start: 20220520, end: 20220526
  16. BACLOFEN [Concomitant]
     Active Substance: BACLOFEN
     Dates: start: 20220518, end: 20220518
  17. SODIUM POTASSIUM MAGNESIUM CALCIUM AND GLUCOSE [Concomitant]
     Indication: Decreased appetite
     Route: 042
     Dates: start: 20220518, end: 20220526
  18. SODIUM POTASSIUM MAGNESIUM CALCIUM AND GLUCOSE [Concomitant]
     Dates: start: 20220605, end: 20220613
  19. POTASSIUM CHLORIDE [Concomitant]
     Active Substance: POTASSIUM CHLORIDE
     Indication: Decreased appetite
     Route: 042
     Dates: start: 20220518, end: 20220526
  20. SODIUM BICARBONATE [Concomitant]
     Active Substance: SODIUM BICARBONATE
     Indication: Decreased appetite
     Route: 042
     Dates: start: 20220518, end: 20220526
  21. MONTMORILLONITE [Concomitant]
     Active Substance: MONTMORILLONITE
     Indication: Diarrhoea
     Dates: start: 20220517, end: 20220517
  22. MONTMORILLONITE [Concomitant]
     Active Substance: MONTMORILLONITE
     Dates: start: 20220608, end: 20220608
  23. BUDESONIDE [Concomitant]
     Active Substance: BUDESONIDE
     Indication: Bronchiolitis
     Route: 055
     Dates: start: 20220519, end: 20220526
  24. DOMPERIDONE [Concomitant]
     Active Substance: DOMPERIDONE
     Dates: start: 20220518, end: 20220526
  25. TERBUTALINE SULFATE [Concomitant]
     Active Substance: TERBUTALINE SULFATE
     Indication: Bronchiolitis
     Dates: start: 20220519, end: 20220526
  26. MOXIFLOXACIN HYDROCHLORIDE [Concomitant]
     Active Substance: MOXIFLOXACIN HYDROCHLORIDE
     Indication: Bronchiolitis
     Dates: start: 20220523, end: 20220601
  27. RABEPRAZOLE SODIUM [Concomitant]
     Active Substance: RABEPRAZOLE SODIUM
     Dates: start: 20220508, end: 20220526
  28. MANNITOL [Concomitant]
     Active Substance: MANNITOL
     Route: 042
     Dates: start: 20220517, end: 20220517
  29. DEXAMETHASONE [Concomitant]
     Active Substance: DEXAMETHASONE
     Indication: Vomiting
     Dates: start: 20220517, end: 20220517
  30. CHLORPROMAZINE HYDROCHLORIDE [Concomitant]
     Active Substance: CHLORPROMAZINE HYDROCHLORIDE
     Indication: Hiccups
     Dates: start: 20220518, end: 20220518
  31. CHLORPROMAZINE HYDROCHLORIDE [Concomitant]
     Active Substance: CHLORPROMAZINE HYDROCHLORIDE
     Dates: start: 20220520, end: 20220520
  32. RACEANISODAMINE [Concomitant]
     Active Substance: RACEANISODAMINE
     Indication: Analgesic therapy
     Dates: start: 20220526, end: 20220614
  33. OSELTAMIVIR [Concomitant]
     Active Substance: OSELTAMIVIR
     Indication: Pyrexia
     Route: 065
     Dates: start: 20220605, end: 20220610
  34. LACTULOSE [Concomitant]
     Active Substance: LACTULOSE
     Indication: Constipation
     Route: 048
     Dates: start: 20220602, end: 20220605
  35. ESOMEPRAZOLE MAGNESIUM [Concomitant]
     Active Substance: ESOMEPRAZOLE MAGNESIUM
     Dates: start: 20220606, end: 20220808

REACTIONS (2)
  - Hypoalbuminaemia [Recovered/Resolved]
  - Autoimmune hepatitis [Recovered/Resolved]

NARRATIVE: CASE EVENT DATE: 20220601
